FAERS Safety Report 15139886 (Version 6)
Quarter: 2021Q1

REPORT INFORMATION
  Report Type: Spontaneous
  Country: US (occurrence: US)
  Receive Date: 20180713
  Receipt Date: 20210105
  Transmission Date: 20210419
  Serious: Yes (Disabling, Other)
  Sender: FDA-Public Use
  Company Number: US-SA-2018SA185250

PATIENT

DRUGS (4)
  1. AUBAGIO [Suspect]
     Active Substance: TERIFLUNOMIDE
     Indication: MULTIPLE SCLEROSIS
     Dosage: 14 MG, QD
     Route: 048
     Dates: start: 20180117
  2. AUBAGIO [Suspect]
     Active Substance: TERIFLUNOMIDE
     Dosage: 14 MG, QD
     Route: 048
     Dates: start: 201803
  3. LENVIMA [Concomitant]
     Active Substance: LENVATINIB
     Indication: ADENOID CYSTIC CARCINOMA
  4. LENVIMA [Concomitant]
     Active Substance: LENVATINIB
     Indication: PULMONARY MASS

REACTIONS (4)
  - Fatigue [Recovering/Resolving]
  - Loss of personal independence in daily activities [Unknown]
  - Depression [Recovering/Resolving]
  - Lung cancer metastatic [Recovering/Resolving]
